FAERS Safety Report 17556036 (Version 2)
Quarter: 2020Q1

REPORT INFORMATION
  Report Type: Spontaneous
  Country: IT (occurrence: IT)
  Receive Date: 20200318
  Receipt Date: 20200324
  Transmission Date: 20200409
  Serious: Yes (Life-Threatening, Hospitalization)
  Sender: FDA-Public Use
  Company Number: IT-PFIZER INC-2020114222

PATIENT
  Age: 62 Year
  Sex: Female
  Weight: 72 kg

DRUGS (11)
  1. SOLDESAM [Concomitant]
     Active Substance: DEXAMETHASONE
     Dosage: UNK
  2. LEVOPRAID [SULPIRIDE] [Concomitant]
     Dosage: UNK
  3. ETOPOSIDE SANDOZ [Concomitant]
     Active Substance: ETOPOSIDE
     Dosage: 168.7 MG, UNK
     Dates: start: 20200129, end: 20200131
  4. ONDANSETRONE ACCORD HEALTHCARE [Concomitant]
     Active Substance: ONDANSETRON HYDROCHLORIDE
     Dosage: 8 MG, UNK
  5. SOLDESAM [Concomitant]
     Active Substance: DEXAMETHASONE
     Dosage: 8 MG, UNK
  6. NIVESTIM [Suspect]
     Active Substance: FILGRASTIM
     Indication: CHEMOTHERAPY
     Dosage: 30 MILLION IU, CYCLIC
     Route: 058
     Dates: start: 20200202
  7. EMEND [Concomitant]
     Active Substance: APREPITANT
     Dosage: UNK
  8. CARDURA [Concomitant]
     Active Substance: DOXAZOSIN MESYLATE
     Dosage: UNK
  9. PANTORC [Concomitant]
     Active Substance: PANTOPRAZOLE SODIUM
     Dosage: 40 MG, UNK
  10. ATORVASTATIN [Concomitant]
     Active Substance: ATORVASTATIN
     Dosage: UNK
  11. CISPLATIN. [Concomitant]
     Active Substance: CISPLATIN
     Dosage: 71.2 MG, UNK
     Dates: start: 20200129, end: 20200131

REACTIONS (2)
  - Febrile neutropenia [Unknown]
  - Drug ineffective [Unknown]

NARRATIVE: CASE EVENT DATE: 20200209
